FAERS Safety Report 22155427 (Version 1)
Quarter: 2023Q1

REPORT INFORMATION
  Report Type: Report from Study
  Country: US (occurrence: US)
  Receive Date: 20230330
  Receipt Date: 20230330
  Transmission Date: 20230418
  Serious: Yes (Other)
  Sender: FDA-Public Use
  Company Number: US-BIOGEN-2023BI01196279

PATIENT
  Age: 44 Year
  Sex: Female

DRUGS (2)
  1. VUMERITY [Suspect]
     Active Substance: DIROXIMEL FUMARATE
     Indication: Multiple sclerosis
     Route: 050
     Dates: start: 20230302, end: 20230310
  2. VUMERITY [Suspect]
     Active Substance: DIROXIMEL FUMARATE
     Route: 050
     Dates: start: 20230310, end: 20230316

REACTIONS (11)
  - Pulmonary oedema [Unknown]
  - Pericardial effusion [Unknown]
  - Chest pain [Unknown]
  - Dyspnoea [Unknown]
  - Skin exfoliation [Unknown]
  - Asthenia [Unknown]
  - Pyrexia [Unknown]
  - Malaise [Unknown]
  - Feeding disorder [Unknown]
  - Weight decreased [Unknown]
  - Alopecia [Unknown]

NARRATIVE: CASE EVENT DATE: 20230301
